FAERS Safety Report 19206941 (Version 1)
Quarter: 2021Q2

REPORT INFORMATION
  Report Type: Spontaneous
  Country: CA (occurrence: CA)
  Receive Date: 20210430
  Receipt Date: 20210430
  Transmission Date: 20210717
  Serious: Yes (Other)
  Sender: FDA-Public Use
  Company Number: CA-APC-202100153

PATIENT
  Age: 58 Year
  Sex: Male

DRUGS (7)
  1. VENTOLIN [Suspect]
     Active Substance: ALBUTEROL SULFATE
     Route: 065
  2. SINGULAIR [Suspect]
     Active Substance: MONTELUKAST SODIUM
     Route: 065
  3. TESTOSTERONE. [Suspect]
     Active Substance: TESTOSTERONE
     Indication: PRODUCT USED FOR UNKNOWN INDICATION
     Route: 065
  4. PULMICORT TURBUHALER [Suspect]
     Active Substance: BUDESONIDE
     Route: 065
  5. PREDNISONE. [Suspect]
     Active Substance: PREDNISONE
     Route: 065
  6. MEPOLIZUMAB [Suspect]
     Active Substance: MEPOLIZUMAB
     Indication: ASTHMA
     Route: 065
  7. FLUTICASONE/SALMETEROL [Suspect]
     Active Substance: FLUTICASONE PROPIONATE\SALMETEROL XINAFOATE
     Route: 065

REACTIONS (10)
  - Blood immunoglobulin E increased [Unknown]
  - Upper-airway cough syndrome [Unknown]
  - Obstructive airways disorder [Unknown]
  - Bronchial wall thickening [Unknown]
  - Therapeutic product effect incomplete [Unknown]
  - Small airways disease [Unknown]
  - Cough [Unknown]
  - Secretion discharge [Unknown]
  - Bronchiectasis [Unknown]
  - Dyspnoea [Unknown]
